FAERS Safety Report 5900818-X (Version None)
Quarter: 2008Q3

REPORT INFORMATION
  Report Type: 
  Country: None (occurrence: None)
  Receive Date: 20080929
  Receipt Date: 20080915
  Transmission Date: 20090109
  Serious: Yes (Hospitalization, Other)
  Sender: FDA-Public Use
  Company Number: CA-JNJFOC-20080903517

PATIENT
  Age: 44 Year
  Sex: Male

DRUGS (5)
  1. REMICADE [Suspect]
     Dosage: IN LATE 2006, THE PATIENT RECEIVED 3 ADDITIONAL INFLIXIMAB INFUSIONS.
     Route: 042
  2. REMICADE [Suspect]
     Indication: COLITIS ULCERATIVE
     Dosage: IN 2001, THE PATIENT RECEIVED 24-MONTH COURSE OF INFLIXIMAB THERAPY.
     Route: 042
  3. ADALIMUMAB [Suspect]
     Indication: COLITIS ULCERATIVE
  4. AZATHIOPRINE [Concomitant]
     Indication: COLITIS ULCERATIVE
  5. CYCLOSPORINE [Concomitant]
     Indication: COLITIS ULCERATIVE

REACTIONS (5)
  - ANAEMIA [None]
  - ASCITES [None]
  - LUPUS-LIKE SYNDROME [None]
  - SEROSITIS [None]
  - THROMBOCYTOPENIA [None]
